FAERS Safety Report 8072806-1 (Version None)
Quarter: 2012Q1

REPORT INFORMATION
  Report Type: 
  Country: None (occurrence: None)
  Receive Date: 20120123
  Receipt Date: 20120123
  Transmission Date: 20120608
  Serious: Yes (Other)
  Sender: FDA-Public Use
  Company Number: None

PATIENT
  Age: 57 Year
  Sex: Female
  Weight: 60.3284 kg

DRUGS (2)
  1. FLUNISOLIDE [Suspect]
     Indication: RHINITIS ALLERGIC
     Dosage: 2 SPRAYS DAILY NASAL
     Route: 045
     Dates: start: 20100810
  2. FLUNISOLIDE [Suspect]
     Indication: SINUSITIS
     Dosage: 2 SPRAYS DAILY NASAL
     Route: 045
     Dates: start: 20100810

REACTIONS (3)
  - APPLICATION SITE IRRITATION [None]
  - DRUG INTOLERANCE [None]
  - APPLICATION SITE PAIN [None]
